FAERS Safety Report 10434644 (Version 1)
Quarter: 2014Q3

REPORT INFORMATION
  Report Type: Spontaneous
  Country: US (occurrence: US)
  Receive Date: 20140906
  Receipt Date: 20140906
  Transmission Date: 20150326
  Serious: Yes (Other)
  Sender: FDA-Public Use
  Company Number: US-JNJFOC-20140903215

PATIENT
  Age: 5 Year
  Sex: Male
  Weight: 19.1 kg

DRUGS (6)
  1. VELCADE [Concomitant]
     Active Substance: BORTEZOMIB
     Indication: ACUTE MYELOID LEUKAEMIA
     Dosage: OVER 3-5 SECONDS ON DAYS 1, 4 AND 8 OF 28 DAYS CYCLE
     Route: 040
     Dates: start: 20140806
  2. CYTARABINE. [Concomitant]
     Active Substance: CYTARABINE
     Indication: ACUTE MYELOID LEUKAEMIA
     Dosage: 100 MG/ M2/ DOSE OR 3.3 MG/ KG/DOSE (IF BSA { 0.6 M2), BID OVER 15-30 MINUTES ON DAYS 1-10
     Route: 037
     Dates: start: 20140806
  3. CYTARABINE. [Concomitant]
     Active Substance: CYTARABINE
     Indication: ACUTE MYELOID LEUKAEMIA
     Dosage: 20 -70 MG (AGE BASED DOSING), ON DAY 1 (CNS POSITIVE PATIENTS: TWICE WEKLY TO A MAXIMUM OF 6 DOSES)
     Route: 037
     Dates: start: 20140806
  4. DAUNORUBICIN HYDROCHLORIDE. [Concomitant]
     Active Substance: DAUNORUBICIN HYDROCHLORIDE
     Indication: ACUTE MYELOID LEUKAEMIA
     Dosage: 50 MG/KG/DOSE OR 1.7 MG/KG/DOSE (IF BSA { 0.6 M2), OVER 1 TO 15 MINUTES ON DAYS 1, 3 AND 5
     Route: 042
     Dates: start: 20140806
  5. ETOPOSIDE. [Concomitant]
     Active Substance: ETOPOSIDE
     Indication: ACUTE MYELOID LEUKAEMIA
     Dosage: 100 MG/M2/DOSE OR 3.3 MG/KG/DOSE (IF BSA { 0.6 M2), OVER 60 TO 120 MINUTES ON DAYS 1 TO 5
     Route: 042
     Dates: start: 20140806
  6. BENADRYL [Suspect]
     Active Substance: DIPHENHYDRAMINE HYDROCHLORIDE
     Indication: PRODUCT USED FOR UNKNOWN INDICATION
     Route: 065

REACTIONS (1)
  - Hypoxia [Recovered/Resolved]

NARRATIVE: CASE EVENT DATE: 20140808
